FAERS Safety Report 4426036-2 (Version None)
Quarter: 2004Q3

REPORT INFORMATION
  Report Type: 
  Country: None (occurrence: None)
  Receive Date: 20040812
  Receipt Date: 20040728
  Transmission Date: 20050211
  Serious: Yes (Other)
  Sender: FDA-Public Use
  Company Number: A-US2004-06888

PATIENT
  Age: 43 Year
  Sex: Female

DRUGS (10)
  1. TRACLEER [Suspect]
     Indication: PULMONARY HYPERTENSION
     Dosage: 125 MG, BID, ORAL
     Route: 048
     Dates: start: 20020829, end: 20040628
  2. TRACLEER [Suspect]
     Dosage: 62.5 MG, BID, ORAL
     Route: 048
     Dates: start: 20020708, end: 20020828
  3. TRACLEER [Suspect]
     Dosage: 62.5 MG, BID, ORAL
     Route: 048
     Dates: start: 20040727
  4. LIPITOR [Concomitant]
  5. VIAGRA [Concomitant]
  6. PANTOPRAZOLE (PANTOPRAZOLE) [Concomitant]
  7. BEXTRA [Concomitant]
  8. ALLEGRA [Concomitant]
  9. TYLENOL [Concomitant]
  10. NAPROSYN [Concomitant]

REACTIONS (4)
  - ALANINE AMINOTRANSFERASE INCREASED [None]
  - ASPARTATE AMINOTRANSFERASE INCREASED [None]
  - BLOOD ALKALINE PHOSPHATASE INCREASED [None]
  - DYSPEPSIA [None]
